FAERS Safety Report 4588933-7 (Version None)
Quarter: 2005Q1

REPORT INFORMATION
  Report Type: 
  Country: None (occurrence: None)
  Receive Date: 20050216
  Receipt Date: 20050126
  Transmission Date: 20050727
  Serious: Yes (Other)
  Sender: FDA-Public Use
  Company Number: US_0501111227

PATIENT
  Age: 42 Year
  Sex: Male
  Weight: 128 kg

DRUGS (8)
  1. ZYPREXA [Suspect]
     Dosage: 20 MG DAY
  2. PROZAC [Concomitant]
  3. NEURONTIN (GABAPENTIN PFIZER) [Concomitant]
  4. CLONAPIN (CLONAZEPAM) [Concomitant]
  5. CELEXA [Concomitant]
  6. WELLBUTRIN SR [Concomitant]
  7. AMBIEN (ZOLPIDEM TARTATE) [Concomitant]
  8. LITHIUM [Concomitant]

REACTIONS (20)
  - ASTHENIA [None]
  - BREAST MASS [None]
  - BREAST TENDERNESS [None]
  - CHEST PAIN [None]
  - COUGH [None]
  - DIABETES MELLITUS NON-INSULIN-DEPENDENT [None]
  - DISTURBANCE IN ATTENTION [None]
  - DYSPNOEA [None]
  - EAR PAIN [None]
  - ENURESIS [None]
  - FATIGUE [None]
  - GASTROOESOPHAGEAL REFLUX DISEASE [None]
  - HALLUCINATION [None]
  - INTERVERTEBRAL DISC PROTRUSION [None]
  - OESOPHAGITIS [None]
  - PARAESTHESIA [None]
  - RESTLESS LEGS SYNDROME [None]
  - SUICIDAL IDEATION [None]
  - TREATMENT NONCOMPLIANCE [None]
  - WEIGHT INCREASED [None]
